APPROVED DRUG PRODUCT: HYDRALAZINE HYDROCHLORIDE
Active Ingredient: HYDRALAZINE HYDROCHLORIDE
Strength: 100MG
Dosage Form/Route: TABLET;ORAL
Application: A211010 | Product #004
Applicant: MACLEODS PHARMACEUTICALS LTD
Approved: Aug 21, 2024 | RLD: No | RS: No | Type: DISCN